FAERS Safety Report 9579386 (Version 2)
Quarter: 2013Q4

REPORT INFORMATION
  Report Type: Spontaneous
  Country: US (occurrence: US)
  Receive Date: 20131001
  Receipt Date: 20131001
  Transmission Date: 20140711
  Serious: No
  Sender: FDA-Public Use
  Company Number: US-AMGEN-USASP2013012409

PATIENT
  Age: 47 Year
  Sex: Female
  Weight: 95.51 kg

DRUGS (2)
  1. ENBREL [Suspect]
     Indication: PSORIATIC ARTHROPATHY
     Dosage: 50 MG, TWICE A WEEK
     Dates: start: 20101001
  2. ENBREL [Suspect]
     Indication: PSORIASIS

REACTIONS (3)
  - Pain [Not Recovered/Not Resolved]
  - Drug ineffective [Unknown]
  - Psoriasis [Not Recovered/Not Resolved]
